FAERS Safety Report 13891467 (Version 6)
Quarter: 2018Q4

REPORT INFORMATION
  Report Type: Spontaneous
  Country: US (occurrence: US)
  Receive Date: 20170822
  Receipt Date: 20181218
  Transmission Date: 20190204
  Serious: Yes (Hospitalization, Other)
  Sender: FDA-Public Use
  Company Number: US-PFIZER INC-2017361397

PATIENT
  Age: 70 Year
  Sex: Female
  Weight: 88 kg

DRUGS (1)
  1. LYRICA [Suspect]
     Active Substance: PREGABALIN
     Indication: NEUROPATHY PERIPHERAL
     Dosage: 300 MG, 3X/DAY
     Route: 048
     Dates: start: 201411, end: 20180821

REACTIONS (9)
  - Mental impairment [Recovered/Resolved]
  - Anxiety disorder [Unknown]
  - Drug ineffective [Unknown]
  - Expired product administered [Unknown]
  - Pain in extremity [Recovered/Resolved]
  - Pain [Recovered/Resolved]
  - Gait inability [Unknown]
  - Panic disorder [Unknown]
  - Overdose [Unknown]

NARRATIVE: CASE EVENT DATE: 201807
